FAERS Safety Report 19071178 (Version 1)
Quarter: 2021Q1

REPORT INFORMATION
  Report Type: Spontaneous
  Country: FR (occurrence: FR)
  Receive Date: 20210330
  Receipt Date: 20210330
  Transmission Date: 20210420
  Serious: Yes (Hospitalization)
  Sender: FDA-Public Use
  Company Number: FR-ROCHE-2796097

PATIENT
  Age: 84 Year
  Sex: Male

DRUGS (2)
  1. BACTRIM [Concomitant]
     Active Substance: SULFAMETHOXAZOLE\TRIMETHOPRIM
     Indication: ANTIFUNGAL PROPHYLAXIS
     Route: 048
     Dates: start: 20200610, end: 20210115
  2. RITUXIMAB. [Suspect]
     Active Substance: RITUXIMAB
     Indication: CHRONIC LYMPHOCYTIC LEUKAEMIA
     Route: 041
     Dates: start: 20200610, end: 20201029

REACTIONS (2)
  - Neutropenia [Recovering/Resolving]
  - Agranulocytosis [Recovered/Resolved with Sequelae]

NARRATIVE: CASE EVENT DATE: 20201219
